FAERS Safety Report 24946950 (Version 3)
Quarter: 2025Q2

REPORT INFORMATION
  Report Type: Spontaneous
  Country: JP (occurrence: JP)
  Receive Date: 20250210
  Receipt Date: 20250416
  Transmission Date: 20250717
  Serious: Yes (Hospitalization)
  Sender: ROCHE
  Company Number: JP-ROCHE-10000202465

PATIENT
  Age: 46 Year
  Sex: Male

DRUGS (4)
  1. XOFLUZA [Suspect]
     Active Substance: BALOXAVIR MARBOXIL
     Indication: Influenza
     Route: 048
     Dates: start: 20250115, end: 20250115
  2. ACETAMINOPHEN [Concomitant]
     Active Substance: ACETAMINOPHEN
     Dosage: 10 DOSES/DAY, PRN
     Route: 048
     Dates: start: 20250115, end: 20250117
  3. DOMPERIDONE [Concomitant]
     Active Substance: DOMPERIDONE
     Dosage: 5 DOSES/DAY, PRN
     Route: 048
     Dates: start: 20250115, end: 20250117
  4. HERBALS [Concomitant]
     Active Substance: HERBALS
     Route: 048
     Dates: start: 20250105, end: 20250117

REACTIONS (1)
  - Colitis ischaemic [Recovered/Resolved]

NARRATIVE: CASE EVENT DATE: 20250116
